FAERS Safety Report 4791294-1 (Version None)
Quarter: 2005Q4

REPORT INFORMATION
  Report Type: 
  Country: None (occurrence: None)
  Receive Date: 20051005
  Receipt Date: 20050925
  Transmission Date: 20060501
  Serious: Yes (Other)
  Sender: FDA-Public Use
  Company Number: 2005-06-0918

PATIENT
  Age: 54 Year
  Sex: Female

DRUGS (4)
  1. NASONEX [Suspect]
     Indication: HOUSE DUST ALLERGY
     Dosage: SEE IMAGE
     Route: 045
     Dates: start: 20040101, end: 20050101
  2. NASONEX [Suspect]
     Indication: HOUSE DUST ALLERGY
     Dosage: SEE IMAGE
     Route: 045
     Dates: start: 20050101
  3. AERIUS (DESLORATADINE) TABLETS [Suspect]
     Indication: HOUSE DUST ALLERGY
     Dosage: ORAL
     Route: 048
     Dates: start: 20030101, end: 20050501
  4. ALLERGY DESENSITIZATION MEDICATION [Concomitant]

REACTIONS (3)
  - AGEUSIA [None]
  - ANOSMIA [None]
  - NASAL CONGESTION [None]
